FAERS Safety Report 5851287-X (Version None)
Quarter: 2008Q3

REPORT INFORMATION
  Report Type: 
  Country: None (occurrence: None)
  Receive Date: 20080731
  Receipt Date: 20080619
  Transmission Date: 20090109
  Serious: No
  Sender: FDA-Public Use
  Company Number: 2005PV006084

PATIENT
  Age: 66 Year
  Sex: Male
  Weight: 96.1 kg

DRUGS (11)
  1. EXENATIDE(EXENATIDE) PEN,DISPOSABLE [Suspect]
     Indication: TYPE 2 DIABETES MELLITUS
     Dosage: 5 UG, 2/D, SUBCUTANEOUS; 10 UG, 2/D, SUBCUTANEOUS
     Route: 058
     Dates: start: 20051118, end: 20051217
  2. EXENATIDE(EXENATIDE) PEN,DISPOSABLE [Suspect]
     Indication: TYPE 2 DIABETES MELLITUS
     Dosage: 5 UG, 2/D, SUBCUTANEOUS; 10 UG, 2/D, SUBCUTANEOUS
     Route: 058
     Dates: start: 20051201
  3. EXENATIDE(EXENATIDE) PEN,DISPOSABLE [Suspect]
     Indication: TYPE 2 DIABETES MELLITUS
     Dosage: 5 UG, 2/D, SUBCUTANEOUS; 10 UG, 2/D, SUBCUTANEOUS
     Route: 058
     Dates: start: 20051218
  4. EXENATIDE PEN (EXENATIDE PEN) [Suspect]
  5. EXENATIDE PEN (EXENATIDE PEN) [Suspect]
  6. EXENATIDE 5MCG PEN (EXENATIDE 5MCG PEN) [Concomitant]
  7. EXENATIDE 10MCG PEN (EXENATIDE 10MCG PEN) [Concomitant]
  8. ACTOS [Concomitant]
  9. GLUCOPHAGE [Concomitant]
  10. PRANDIN [Concomitant]
  11. METFORMIN HCL [Concomitant]

REACTIONS (4)
  - ABDOMINAL DISTENSION [None]
  - DECREASED APPETITE [None]
  - NAUSEA [None]
  - WEIGHT DECREASED [None]
